FAERS Safety Report 22644271 (Version 1)
Quarter: 2023Q2

REPORT INFORMATION
  Report Type: Report from Study
  Country: US (occurrence: US)
  Receive Date: 20230627
  Receipt Date: 20230627
  Transmission Date: 20230721
  Serious: Yes (Other)
  Sender: FDA-Public Use
  Company Number: US-JNJFOC-20230647490

PATIENT

DRUGS (1)
  1. CANAGLIFLOZIN [Suspect]
     Active Substance: CANAGLIFLOZIN
     Indication: Type 2 diabetes mellitus
     Route: 048

REACTIONS (4)
  - Diabetic ketoacidosis [Unknown]
  - Limb amputation [Unknown]
  - Fungal infection [Unknown]
  - Weight decreased [Unknown]
